FAERS Safety Report 15606755 (Version 3)
Quarter: 2018Q4

REPORT INFORMATION
  Report Type: Report from Study
  Country: US (occurrence: US)
  Receive Date: 20181112
  Receipt Date: 20181220
  Transmission Date: 20190205
  Serious: Yes (Other)
  Sender: FDA-Public Use
  Company Number: US-MYLANLABS-2018M1065248

PATIENT
  Sex: Male
  Weight: 180.8 kg

DRUGS (1)
  1. GLATIRAMER ACETATE INJECTION [Suspect]
     Active Substance: GLATIRAMER ACETATE
     Indication: RELAPSING-REMITTING MULTIPLE SCLEROSIS
     Dosage: 40 MG, 3XW
     Route: 058

REACTIONS (17)
  - Head discomfort [Unknown]
  - Injection site erythema [Unknown]
  - Dizziness [Unknown]
  - Injection site pruritus [Unknown]
  - Hypoaesthesia [Unknown]
  - Influenza [Unknown]
  - Tinnitus [Unknown]
  - Injection site pain [Unknown]
  - Intraocular pressure increased [Unknown]
  - Neuralgia [Unknown]
  - Condition aggravated [Unknown]
  - Eye pain [Unknown]
  - Drug ineffective [Unknown]
  - Muscle spasms [Unknown]
  - Vision blurred [Unknown]
  - Balance disorder [Unknown]
  - Headache [Unknown]
